FAERS Safety Report 8948026 (Version 1)
Quarter: 2012Q4

REPORT INFORMATION
  Report Type: 
  Country: US (occurrence: US)
  Receive Date: 20121204
  Receipt Date: 20121204
  Transmission Date: 20130627
  Serious: No
  Sender: FDA-Public Use
  Company Number: US-ASTRAZENECA-2012SE19983

PATIENT
  Age: 64 Year
  Sex: Female
  Weight: 74.8 kg

DRUGS (2)
  1. NEXIUM [Suspect]
     Route: 048
     Dates: start: 20120319, end: 20120322
  2. WESTHROID [Concomitant]

REACTIONS (4)
  - Bedridden [Unknown]
  - Muscular weakness [Unknown]
  - Insomnia [Unknown]
  - Vision blurred [Unknown]
